FAERS Safety Report 18516615 (Version 2)
Quarter: 2020Q4

REPORT INFORMATION
  Report Type: Spontaneous
  Country: ES (occurrence: ES)
  Receive Date: 20201118
  Receipt Date: 20201208
  Transmission Date: 20210114
  Serious: Yes (Death, Other)
  Sender: FDA-Public Use
  Company Number: ES-AMGEN-ESPSP2020183530

PATIENT

DRUGS (1)
  1. PROLIA [Suspect]
     Active Substance: DENOSUMAB
     Indication: OSTEOPOROSIS
     Route: 065

REACTIONS (6)
  - Femur fracture [Unknown]
  - Forearm fracture [Unknown]
  - Fracture [Unknown]
  - Death [Fatal]
  - Humerus fracture [Unknown]
  - Spinal fracture [Unknown]
